FAERS Safety Report 19786728 (Version 2)
Quarter: 2021Q4

REPORT INFORMATION
  Report Type: Spontaneous
  Country: US (occurrence: US)
  Receive Date: 20210903
  Receipt Date: 20211005
  Transmission Date: 20220303
  Serious: Yes (Life-Threatening)
  Sender: FDA-Public Use
  Company Number: US-PFIZER INC-202101098556

PATIENT
  Sex: Female

DRUGS (3)
  1. FENTANYL CITRATE [Suspect]
     Active Substance: FENTANYL CITRATE
     Indication: Anaesthesia
     Dosage: 100MCG/2ML AMPULE 25MCG
     Route: 042
     Dates: start: 20210817, end: 20210817
  2. FENTANYL CITRATE [Suspect]
     Active Substance: FENTANYL CITRATE
     Dosage: 100MCG/2ML AMPULE 25MCG
     Route: 042
     Dates: start: 20210819, end: 20210819
  3. FENTANYL CITRATE [Suspect]
     Active Substance: FENTANYL CITRATE
     Dosage: 100MCG/2ML AMPULE 25MCG
     Route: 042
     Dates: start: 20210824, end: 20210824

REACTIONS (2)
  - Blood pressure increased [Unknown]
  - Heart rate decreased [Unknown]
